FAERS Safety Report 7627040-3 (Version None)
Quarter: 2011Q3

REPORT INFORMATION
  Report Type: 
  Country: None (occurrence: None)
  Receive Date: 20110721
  Receipt Date: 20110714
  Transmission Date: 20111222
  Serious: Yes (Hospitalization)
  Sender: FDA-Public Use
  Company Number: PHHY2011DK59562

PATIENT
  Sex: Female
  Weight: 69 kg

DRUGS (15)
  1. TOILAX [Concomitant]
     Indication: CONSTIPATION
  2. POTASSIUM CHLORIDE [Concomitant]
     Indication: HYPOKALAEMIA
  3. MORPHINE SULFATE [Concomitant]
     Indication: PAIN
  4. AMARYL [Concomitant]
     Indication: TYPE 2 DIABETES MELLITUS
  5. MAGNYL [Concomitant]
  6. ASPIRIN [Concomitant]
     Indication: THROMBOSIS PROPHYLAXIS
  7. SIMVASTATIN [Concomitant]
     Indication: HYPERCHOLESTEROLAEMIA
  8. PINEX [Concomitant]
     Indication: PAIN
  9. METFORMIN SANDOZ [Suspect]
     Indication: TYPE 2 DIABETES MELLITUS
     Dosage: 500 MG, BID
     Route: 048
     Dates: start: 20110601
  10. FUCIDINE CAP [Concomitant]
     Indication: SKIN INFECTION
  11. PERILAX [Concomitant]
  12. GLIMEPIRIDE [Concomitant]
  13. MAGNYL /OLD FORM/ ^DAK^ [Concomitant]
  14. FUROSEMIDE [Concomitant]
     Indication: DIURETIC THERAPY
  15. METFORMIN HYDROCHLORIDE [Suspect]
     Indication: TYPE 2 DIABETES MELLITUS
     Dosage: 1000 MG, DAILY

REACTIONS (4)
  - METABOLIC ALKALOSIS [None]
  - VOMITING [None]
  - ABDOMINAL PAIN [None]
  - NAUSEA [None]
